FAERS Safety Report 7786619-9 (Version None)
Quarter: 2011Q3

REPORT INFORMATION
  Report Type: 
  Country: None (occurrence: None)
  Receive Date: 20110929
  Receipt Date: 20110919
  Transmission Date: 20111222
  Serious: Yes (Other)
  Sender: FDA-Public Use
  Company Number: CA-ELI_LILLY_AND_COMPANY-CA201109005153

PATIENT
  Sex: Male

DRUGS (6)
  1. PROCHLORPERAZINE [Concomitant]
  2. ZYPREXA [Suspect]
     Indication: BIPOLAR DISORDER
     Dosage: 7.5 MG, EACH EVENING
  3. PERIDOL [Concomitant]
  4. ZYPREXA [Suspect]
     Dosage: 10 MG, EACH EVENING
  5. OXAZEPAM [Concomitant]
  6. ZYPREXA [Suspect]
     Dosage: 2.5 MG, EACH EVENING

REACTIONS (17)
  - WEIGHT INCREASED [None]
  - METABOLIC SYNDROME [None]
  - DYSLIPIDAEMIA [None]
  - BLOOD CREATININE DECREASED [None]
  - ATRIAL FIBRILLATION [None]
  - HYPERGLYCAEMIA [None]
  - NAIL HYPERTROPHY [None]
  - OEDEMA PERIPHERAL [None]
  - ALANINE AMINOTRANSFERASE INCREASED [None]
  - SLEEP APNOEA SYNDROME [None]
  - ASPARTATE AMINOTRANSFERASE INCREASED [None]
  - GLUCOSE TOLERANCE IMPAIRED [None]
  - EPISTAXIS [None]
  - HYPOACUSIS [None]
  - RESTLESS LEGS SYNDROME [None]
  - VISUAL ACUITY REDUCED [None]
  - UPPER RESPIRATORY TRACT INFECTION [None]
